FAERS Safety Report 5546078-3 (Version None)
Quarter: 2007Q4

REPORT INFORMATION
  Report Type: 
  Country: None (occurrence: None)
  Receive Date: 20071211
  Receipt Date: 20070925
  Transmission Date: 20080405
  Serious: No
  Sender: FDA-Public Use
  Company Number: US-BRISTOL-MYERS SQUIBB COMPANY-13918933

PATIENT
  Age: 54 Year
  Sex: Male

DRUGS (1)
  1. EMSAM [Suspect]
     Route: 062
     Dates: start: 20070925, end: 20070925

REACTIONS (1)
  - APPLICATION SITE RASH [None]
